FAERS Safety Report 16653263 (Version 2)
Quarter: 2019Q3

REPORT INFORMATION
  Report Type: Report from Study
  Country: US (occurrence: US)
  Receive Date: 20190731
  Receipt Date: 20190806
  Transmission Date: 20191004
  Serious: Yes (Hospitalization, Other)
  Sender: FDA-Public Use
  Company Number: US-BAYER-2019-143198

PATIENT
  Age: 7 Month
  Sex: Male
  Weight: 8.16 kg

DRUGS (2)
  1. REMODULIN [Concomitant]
     Active Substance: TREPROSTINIL
     Dosage: UNK
  2. ADEMPAS [Suspect]
     Active Substance: RIOCIGUAT
     Indication: PULMONARY ARTERIAL HYPERTENSION
     Dosage: 0.5 MG, TID
     Route: 048
     Dates: start: 20190701

REACTIONS (5)
  - Off label use [None]
  - Product administered to patient of inappropriate age [None]
  - Blood pressure decreased [None]
  - Fatigue [Not Recovered/Not Resolved]
  - Hospitalisation [None]

NARRATIVE: CASE EVENT DATE: 201907
